FAERS Safety Report 7754217-9 (Version None)
Quarter: 2011Q3

REPORT INFORMATION
  Report Type: 
  Country: None (occurrence: None)
  Receive Date: 20110915
  Receipt Date: 20110912
  Transmission Date: 20111222
  Serious: Yes (Other)
  Sender: FDA-Public Use
  Company Number: US-TEVA-300679USA

PATIENT
  Age: 20 Year
  Sex: Female

DRUGS (4)
  1. MIDAZOLAM HCL [Suspect]
     Indication: SURGERY
     Route: 042
  2. PROPOFOL [Suspect]
     Indication: SURGERY
     Route: 042
  3. KETAMINE HCL [Suspect]
     Indication: SURGERY
     Route: 042
  4. FENTANYL [Suspect]
     Indication: SURGERY
     Dosage: 100UG
     Route: 042

REACTIONS (1)
  - ANAESTHETIC COMPLICATION NEUROLOGICAL [None]
